FAERS Safety Report 8026255-2 (Version None)
Quarter: 2012Q1

REPORT INFORMATION
  Report Type: 
  Country: None (occurrence: None)
  Receive Date: 20120105
  Receipt Date: 20111102
  Transmission Date: 20120608
  Serious: No
  Sender: FDA-Public Use
  Company Number: US-ABBOTT-11P-163-0871036-00

PATIENT
  Sex: Female
  Weight: 83.99 kg

DRUGS (2)
  1. SYNTHROID [Suspect]
     Indication: THERAPY REGIMEN CHANGED
     Dosage: PATIENT WAS TO GET 175MCG
     Dates: start: 20110401, end: 20111001
  2. SYNTHROID [Suspect]

REACTIONS (5)
  - TABLET PHYSICAL ISSUE [None]
  - BLOOD THYROID STIMULATING HORMONE INCREASED [None]
  - DRUG DISPENSING ERROR [None]
  - INCORRECT DOSE ADMINISTERED [None]
  - MEDICATION ERROR [None]
